FAERS Safety Report 14750764 (Version 1)
Quarter: 2018Q2

REPORT INFORMATION
  Report Type: Spontaneous
  Country: US (occurrence: US)
  Receive Date: 20180406
  Receipt Date: 20180406
  Transmission Date: 20180711
  Serious: No
  Sender: FDA-Public Use
  Company Number: None

PATIENT
  Age: 65 Year
  Sex: Male

DRUGS (1)
  1. TETRABENAZIN TAB 12.5MG [Suspect]
     Active Substance: TETRABENAZINE

REACTIONS (2)
  - Hyponatraemia [None]
  - Blood osmolarity decreased [None]

NARRATIVE: CASE EVENT DATE: 20180406
